FAERS Safety Report 16334034 (Version 1)
Quarter: 2019Q2

REPORT INFORMATION
  Report Type: Spontaneous
  Country: AU (occurrence: AU)
  Receive Date: 20190520
  Receipt Date: 20190520
  Transmission Date: 20190711
  Serious: Yes (Other)
  Sender: FDA-Public Use
  Company Number: AU-ELI_LILLY_AND_COMPANY-AU201905004905

PATIENT
  Sex: Male

DRUGS (6)
  1. HUMALOG [Suspect]
     Active Substance: INSULIN LISPRO
     Indication: TYPE 1 DIABETES MELLITUS
     Dosage: 8 U, BID
     Route: 065
  2. RAMIPRIL. [Concomitant]
     Active Substance: RAMIPRIL
  3. KEPPRA [Concomitant]
     Active Substance: LEVETIRACETAM
  4. LANTUS [Concomitant]
     Active Substance: INSULIN GLARGINE
  5. KYTRIL [Concomitant]
     Active Substance: GRANISETRON HYDROCHLORIDE
  6. TEMOZOLOMIDE. [Concomitant]
     Active Substance: TEMOZOLOMIDE

REACTIONS (2)
  - Brain neoplasm [Unknown]
  - Blood pressure abnormal [Unknown]
